FAERS Safety Report 8349921-8 (Version None)
Quarter: 2012Q2

REPORT INFORMATION
  Report Type: 
  Country: None (occurrence: None)
  Receive Date: 20120510
  Receipt Date: 20120426
  Transmission Date: 20120825
  Serious: Yes (Hospitalization)
  Sender: FDA-Public Use
  Company Number: FR-VERTEX PHARMACEUTICALS INC.-AE-2011-001234

PATIENT
  Sex: Female
  Weight: 72 kg

DRUGS (12)
  1. PEGASYS [Concomitant]
     Indication: HEPATITIS C
     Route: 058
     Dates: start: 20110629, end: 20110902
  2. SITAGLIPTIN PHOSPHATE [Concomitant]
     Indication: TYPE 2 DIABETES MELLITUS
  3. COPEGUS [Concomitant]
     Indication: HEPATITIS C
     Route: 048
     Dates: start: 20110629, end: 20110902
  4. PAROXETINE [Concomitant]
     Indication: ANXIETY
     Dates: start: 20060101
  5. IMOVANE [Concomitant]
     Indication: SLEEP DISORDER
  6. TENORMIN [Concomitant]
     Indication: HYPERTENSION
     Route: 048
     Dates: start: 20040101
  7. POTASSIUM CHLORIDE [Concomitant]
     Indication: HYPERTENSION
     Dates: start: 20060101
  8. VX-950 [Suspect]
     Indication: HEPATITIS C
     Route: 048
     Dates: start: 20110629, end: 20110824
  9. NICARDIPINE HYDROCHLORIDE [Concomitant]
     Indication: HYPERTENSION
     Route: 048
     Dates: start: 20040101
  10. TENORETIC 100 [Concomitant]
     Indication: HYPERTENSION
  11. SITAGLIPTIN PHOSPHATE [Concomitant]
     Indication: GLUCOSE TOLERANCE IMPAIRED
     Dates: start: 20040101
  12. PAROXETINE [Concomitant]
     Indication: DEPRESSION

REACTIONS (5)
  - DEHYDRATION [None]
  - ANAEMIA [None]
  - GENERAL PHYSICAL HEALTH DETERIORATION [None]
  - DECREASED APPETITE [None]
  - RASH [None]
